FAERS Safety Report 19020967 (Version 1)
Quarter: 2021Q1

REPORT INFORMATION
  Report Type: Spontaneous
  Country: FR (occurrence: FR)
  Receive Date: 20210317
  Receipt Date: 20210317
  Transmission Date: 20210420
  Serious: Yes (Disabling, Other)
  Sender: FDA-Public Use
  Company Number: NVSC2021FR052601

PATIENT
  Sex: Female

DRUGS (5)
  1. ENANTONE LP [Suspect]
     Active Substance: LEUPROLIDE ACETATE
     Dosage: UNK
     Route: 065
     Dates: end: 202011
  2. BISOPROLOL [Suspect]
     Active Substance: BISOPROLOL
     Indication: TACHYCARDIA
     Dosage: UNK
     Route: 065
  3. EXACYL [Concomitant]
     Active Substance: TRANEXAMIC ACID
     Indication: UTERINE HAEMORRHAGE
     Dosage: UNK
     Route: 065
     Dates: start: 202009
  4. TEMESTA [Concomitant]
     Indication: ANXIETY
     Dosage: UNK
     Route: 065
  5. ENANTONE LP [Suspect]
     Active Substance: LEUPROLIDE ACETATE
     Indication: ENDOMETRIOSIS
     Dosage: UNK UNK, MONTHLY
     Route: 065
     Dates: start: 202009, end: 20201120

REACTIONS (12)
  - Migraine [Unknown]
  - Headache [Unknown]
  - Palpitations [Unknown]
  - Sleep apnoea syndrome [Unknown]
  - Liver function test abnormal [Unknown]
  - White blood cell count increased [Unknown]
  - Fatigue [Unknown]
  - Abdominal pain lower [Unknown]
  - Dyspnoea [Unknown]
  - Tachycardia [Unknown]
  - Uterine haemorrhage [Unknown]
  - Hot flush [Unknown]

NARRATIVE: CASE EVENT DATE: 202010
